FAERS Safety Report 23572581 (Version 1)
Quarter: 2024Q1

REPORT INFORMATION
  Report Type: Spontaneous
  Country: US (occurrence: US)
  Receive Date: 20240227
  Receipt Date: 20240227
  Transmission Date: 20240410
  Serious: No
  Sender: FDA-Public Use
  Company Number: US-AVADEL CNS PHARMACEUTICALS, LLC-2023AVA00472

PATIENT
  Sex: Female

DRUGS (4)
  1. LUMRYZ [Suspect]
     Active Substance: SODIUM OXYBATE
     Indication: Narcolepsy
     Dosage: 7.5 G, ONCE NIGHTLY AT BEDTIME
     Route: 048
     Dates: start: 20231122, end: 2023
  2. LUMRYZ [Suspect]
     Active Substance: SODIUM OXYBATE
     Indication: Somnolence
     Dosage: 7.5 G, ONCE NIGHTLY AT BEDTIME
     Route: 048
     Dates: start: 2023
  3. LUMRYZ [Suspect]
     Active Substance: SODIUM OXYBATE
     Indication: Narcolepsy
     Dosage: 6 G, ONCE NIGHTLY AT BEDTIME
     Route: 048
  4. LUMRYZ [Suspect]
     Active Substance: SODIUM OXYBATE
     Indication: Somnolence

REACTIONS (6)
  - Yawning [Unknown]
  - Sleep disorder [Unknown]
  - Insomnia [Not Recovered/Not Resolved]
  - Somnolence [Unknown]
  - Somnambulism [Not Recovered/Not Resolved]
  - Nocturia [Unknown]

NARRATIVE: CASE EVENT DATE: 20230101
